FAERS Safety Report 7332882-8 (Version None)
Quarter: 2011Q1

REPORT INFORMATION
  Report Type: 
  Country: None (occurrence: None)
  Receive Date: 20110304
  Receipt Date: 20110222
  Transmission Date: 20110831
  Serious: Yes (Other)
  Sender: FDA-Public Use
  Company Number: PHFR2010GB05318

PATIENT
  Sex: Female

DRUGS (9)
  1. CARBAMAZEPINE [Suspect]
     Indication: PETIT MAL EPILEPSY
     Route: 048
  2. TEGRETOL [Suspect]
  3. CO-AMILOFRUSE [Concomitant]
  4. RISEDRONIC ACID [Concomitant]
  5. ENALAPRIL [Concomitant]
  6. ATORVASTATIN CALCIUM [Concomitant]
     Dosage: UNK
  7. CALCICHEW D3 [Concomitant]
     Dosage: UNK
  8. SALBUTAMOL [Concomitant]
  9. FELODIPINE [Concomitant]
     Dosage: UNK

REACTIONS (2)
  - DRUG INEFFECTIVE [None]
  - CONVULSION [None]
